FAERS Safety Report 10264215 (Version 1)
Quarter: 2014Q2

REPORT INFORMATION
  Report Type: Spontaneous
  Country: US (occurrence: US)
  Receive Date: 20140627
  Receipt Date: 20140627
  Transmission Date: 20141212
  Serious: Yes (Other)
  Sender: FDA-Public Use
  Company Number: US-AMGEN INC.-USASP2014047834

PATIENT
  Age: 60 Year
  Sex: Female

DRUGS (8)
  1. ENBREL [Suspect]
     Indication: PRODUCT USED FOR UNKNOWN INDICATION
     Dosage: 50 MG, QWK
     Route: 065
     Dates: start: 20130724
  2. CELEBREX [Concomitant]
     Dosage: UNK
  3. PLAQUENIL                          /00072602/ [Concomitant]
     Dosage: UNK
  4. PRILOSEC                           /00661201/ [Concomitant]
     Dosage: UNK
  5. ALLEGRA [Concomitant]
     Dosage: UNK
  6. LEVOTHYROXINE [Concomitant]
     Dosage: UNK
  7. LOVASTATIN [Concomitant]
     Dosage: UNK
  8. CORTISONE [Concomitant]
     Dosage: UNK

REACTIONS (1)
  - Surgery [Unknown]
